FAERS Safety Report 9141776 (Version 2)
Quarter: 2013Q3

REPORT INFORMATION
  Report Type: Spontaneous
  Country: US (occurrence: US)
  Receive Date: 20130305
  Receipt Date: 20130904
  Transmission Date: 20140515
  Serious: No
  Sender: FDA-Public Use
  Company Number: US-AMGEN-USASP2013013949

PATIENT
  Age: 18 Year
  Sex: Female
  Weight: 79.37 kg

DRUGS (3)
  1. ENBREL [Suspect]
     Indication: RHEUMATOID ARTHRITIS
     Dosage: 50 MG, QWK
     Route: 058
  2. MULTIVITAMINS, PLAIN [Concomitant]
     Dosage: UNK
  3. MIRENA [Concomitant]
     Dosage: UNK

REACTIONS (9)
  - Headache [Unknown]
  - Oropharyngeal pain [Unknown]
  - Injection site bruising [Not Recovered/Not Resolved]
  - Injection site reaction [Unknown]
  - Injection site warmth [Not Recovered/Not Resolved]
  - Injection site swelling [Unknown]
  - Injection site pain [Recovered/Resolved]
  - Injection site pruritus [Unknown]
  - Injection site erythema [Unknown]
